FAERS Safety Report 25209113 (Version 2)
Quarter: 2025Q2

REPORT INFORMATION
  Report Type: Spontaneous
  Country: US (occurrence: US)
  Receive Date: 20250417
  Receipt Date: 20250430
  Transmission Date: 20250716
  Serious: Yes (Other)
  Sender: BRISTOL-MYERS SQUIBB COMPANY
  Company Number: US-BRISTOL-MYERS SQUIBB COMPANY-2025-053510

PATIENT
  Age: 74 Year
  Sex: Male
  Weight: 90.72 kg

DRUGS (1)
  1. POMALYST [Suspect]
     Active Substance: POMALIDOMIDE
     Indication: Plasma cell myeloma in remission
     Dosage: FREQUENCY: DAILY FOR 3 WEEKS ON, THEN 1 WEEK OFF
     Route: 048

REACTIONS (2)
  - Drug intolerance [Unknown]
  - Neuropathy peripheral [Unknown]
